FAERS Safety Report 4395268-4 (Version None)
Quarter: 2004Q3

REPORT INFORMATION
  Report Type: 
  Country: None (occurrence: None)
  Receive Date: 20040706
  Receipt Date: 20040610
  Transmission Date: 20050211
  Serious: Yes (Other)
  Sender: FDA-Public Use
  Company Number: 2004221072GB

PATIENT
  Age: 44 Year
  Sex: Female

DRUGS (1)
  1. PROSTIN E2 [Suspect]
     Indication: INDUCED LABOUR
     Dosage: 3 MG, QD, VAGINAL
     Route: 067
     Dates: start: 20040416, end: 20040416

REACTIONS (3)
  - COMPLICATIONS OF MATERNAL EXPOSURE TO THERAPEUTIC DRUGS [None]
  - MATERNAL DISTRESS DURING LABOUR [None]
  - UTERINE HYPERTONUS [None]
